FAERS Safety Report 10193600 (Version 1)
Quarter: 2014Q2

REPORT INFORMATION
  Report Type: Spontaneous
  Country: US (occurrence: US)
  Receive Date: 20140524
  Receipt Date: 20140524
  Transmission Date: 20141212
  Serious: No
  Sender: FDA-Public Use
  Company Number: US-SA-2013SA131016

PATIENT
  Age: 53 Year
  Sex: Female
  Weight: 165 kg

DRUGS (7)
  1. LANTUS SOLOSTAR [Suspect]
     Indication: TYPE 2 DIABETES MELLITUS
     Dosage: DOSE:10 UNIT(S)
     Route: 051
     Dates: start: 20131008
  2. LANTUS SOLOSTAR [Suspect]
     Indication: TYPE 2 DIABETES MELLITUS
     Dosage: DOSE:10 UNIT(S)
     Route: 058
     Dates: start: 20131008
  3. SOLOSTAR [Concomitant]
     Indication: DEVICE THERAPY
  4. METFORMIN [Concomitant]
     Route: 065
     Dates: start: 20131210
  5. LISINOPRIL [Concomitant]
     Route: 065
  6. APIDRA [Concomitant]
     Dosage: DOSE:10 UNIT(S)
  7. GLIPIZIDE [Concomitant]
     Dosage: 1 TABLET
     Route: 048

REACTIONS (5)
  - Oedema mouth [Recovered/Resolved]
  - Alopecia [Not Recovered/Not Resolved]
  - Injection site pain [Not Recovered/Not Resolved]
  - Injection site pain [Not Recovered/Not Resolved]
  - Injection site mass [Not Recovered/Not Resolved]
